FAERS Safety Report 19840745 (Version 1)
Quarter: 2021Q3

REPORT INFORMATION
  Report Type: Spontaneous
  Country: GB (occurrence: GB)
  Receive Date: 20210916
  Receipt Date: 20210916
  Transmission Date: 20211014
  Serious: Yes (Other)
  Sender: FDA-Public Use
  Company Number: GB-ACCORD-238465

PATIENT
  Age: 46 Year
  Sex: Female
  Weight: 77 kg

DRUGS (6)
  1. ESOMEPRAZOLE/ESOMEPRAZOLE MAGNESIUM/ESOMEPRAZOLE SODIUM [Concomitant]
     Active Substance: ESOMEPRAZOLE
     Dates: start: 20200424
  2. ACIDEX [Concomitant]
     Dosage: TAKE 5ML TO 10ML 4 TIMES A DAY (AFTER FOOD AND
     Dates: start: 20210207
  3. PROPRANOLOL [Concomitant]
     Active Substance: PROPRANOLOL HYDROCHLORIDE
     Dates: start: 20200424
  4. AMITRIPTYLINE [Concomitant]
     Active Substance: AMITRIPTYLINE
     Dosage: AT NIGHT AS RECOMMENDED BY GASTRO
     Dates: start: 20201215
  5. IRON [Concomitant]
     Active Substance: IRON
     Dosage: IN THE MORNING
     Dates: start: 20200703
  6. RAMIPRIL. [Suspect]
     Active Substance: RAMIPRIL
     Indication: PRODUCT USED FOR UNKNOWN INDICATION
     Dates: start: 20210827

REACTIONS (2)
  - Chest pain [Recovering/Resolving]
  - Angina unstable [Recovering/Resolving]

NARRATIVE: CASE EVENT DATE: 20210902
